FAERS Safety Report 4948773-3 (Version None)
Quarter: 2006Q1

REPORT INFORMATION
  Report Type: 
  Country: None (occurrence: None)
  Receive Date: 20060315
  Receipt Date: 20060307
  Transmission Date: 20060701
  Serious: Yes (Hospitalization)
  Sender: FDA-Public Use
  Company Number: 2006PV009790

PATIENT
  Age: 68 Year
  Sex: Male
  Weight: 127.0072 kg

DRUGS (5)
  1. BYETTA [Suspect]
     Indication: DIABETES MELLITUS NON-INSULIN-DEPENDENT
     Dosage: 5 MCG; BID; SC
     Route: 058
     Dates: start: 20050625, end: 20060307
  2. METFORMIN [Concomitant]
  3. HUMALOG [Concomitant]
  4. HUMALOG [Concomitant]
  5. PRILOSEC [Concomitant]

REACTIONS (6)
  - ANOREXIA [None]
  - BLOOD GLUCOSE DECREASED [None]
  - COLONIC POLYP [None]
  - CONDITION AGGRAVATED [None]
  - DIVERTICULITIS [None]
  - NAUSEA [None]
